FAERS Safety Report 4701195-2 (Version None)
Quarter: 2005Q2

REPORT INFORMATION
  Report Type: 
  Country: None (occurrence: None)
  Receive Date: 20050114
  Receipt Date: 20050114
  Transmission Date: 20051028
  Serious: Yes (Other)
  Sender: FDA-Public Use
  Company Number: None

PATIENT
  Sex: Female

DRUGS (4)
  1. OXYCONTIN [Suspect]
     Indication: PAIN
     Dosage: 80 MG - 6/ DAY
  2. OXYCONTIN [Suspect]
     Indication: SICKLE CELL ANAEMIA
     Dosage: 80 MG - 6/ DAY
  3. HYDROCODONE [Concomitant]
  4. AMITRIPTYLINE HCL [Concomitant]

REACTIONS (2)
  - PRURITUS [None]
  - RASH [None]
